FAERS Safety Report 6412248-5 (Version None)
Quarter: 2009Q4

REPORT INFORMATION
  Report Type: 
  Country: None (occurrence: None)
  Receive Date: 20091023
  Receipt Date: 20091022
  Transmission Date: 20100525
  Serious: Yes (Death)
  Sender: FDA-Public Use
  Company Number: JP-JNJFOC-20091004808

PATIENT
  Sex: Female

DRUGS (4)
  1. DUROTEP [Suspect]
     Route: 062
     Dates: start: 20090414
  2. DUROTEP [Suspect]
     Route: 062
     Dates: start: 20090414
  3. DUROTEP [Suspect]
     Indication: CANCER PAIN
     Route: 062
     Dates: start: 20090414
  4. P GUARD [Concomitant]
     Indication: CANCER PAIN
     Route: 048
     Dates: start: 20090324, end: 20090413

REACTIONS (1)
  - COLON CANCER [None]
